APPROVED DRUG PRODUCT: MONISTAT 3 COMBINATION PACK (PREFILLED)
Active Ingredient: MICONAZOLE NITRATE
Strength: 2%,4%
Dosage Form/Route: CREAM;TOPICAL, VAGINAL
Application: N021261 | Product #001
Applicant: MEDTECH PRODUCTS INC
Approved: Feb 2, 2001 | RLD: Yes | RS: Yes | Type: OTC